FAERS Safety Report 10731801 (Version 3)
Quarter: 2016Q3

REPORT INFORMATION
  Report Type: Spontaneous
  Country: RO (occurrence: RO)
  Receive Date: 20150123
  Receipt Date: 20160909
  Transmission Date: 20161109
  Serious: Yes (Other)
  Sender: FDA-Public Use
  Company Number: RO-RANBAXY-2015RR-91680

PATIENT
  Age: 58 Year
  Sex: Male

DRUGS (8)
  1. MEROPENEM. [Suspect]
     Active Substance: MEROPENEM
     Indication: PNEUMONIA
  2. FLUCONAZOLE. [Suspect]
     Active Substance: FLUCONAZOLE
     Indication: MENDELSON^S SYNDROME
  3. VANCOMYCIN [Suspect]
     Active Substance: VANCOMYCIN
     Indication: PNEUMONIA
     Route: 065
  4. VANCOMYCIN [Suspect]
     Active Substance: VANCOMYCIN
     Indication: MENDELSON^S SYNDROME
  5. MEROPENEM. [Suspect]
     Active Substance: MEROPENEM
     Indication: MENDELSON^S SYNDROME
     Route: 065
  6. FLUCONAZOLE. [Suspect]
     Active Substance: FLUCONAZOLE
     Indication: PNEUMONIA
     Dosage: 400 MG, DAILY
     Route: 065
  7. COLISTIN [Suspect]
     Active Substance: COLISTIN
     Indication: PNEUMONIA
     Route: 065
  8. COLISTIN [Suspect]
     Active Substance: COLISTIN
     Indication: MENDELSON^S SYNDROME

REACTIONS (1)
  - Acute kidney injury [Recovered/Resolved]
